FAERS Safety Report 7222169-6 (Version None)
Quarter: 2011Q1

REPORT INFORMATION
  Report Type: 
  Country: None (occurrence: None)
  Receive Date: 20110112
  Receipt Date: 20110107
  Transmission Date: 20110831
  Serious: Yes (Disabling)
  Sender: FDA-Public Use
  Company Number: GB-AMGEN LTD.-GBRCT2010000334

PATIENT
  Sex: Male

DRUGS (9)
  1. DICLOFENAC SODIUM [Concomitant]
  2. ZOLADEX [Concomitant]
  3. TRAMADOL [Concomitant]
  4. DOCUSATE [Concomitant]
  5. INFUMORPH [Concomitant]
     Dosage: 20 MG, BID
  6. LANSOPRAZOLE [Concomitant]
  7. DEXAMETHASONE [Concomitant]
     Dosage: 2 MG, QD
  8. ACETAMINOPHEN [Concomitant]
     Dosage: UNK
  9. DENOSUMAB [Suspect]
     Indication: NEOPLASM MALIGNANT
     Dosage: 120 MG, Q4WK
     Dates: start: 20100330, end: 20100907

REACTIONS (1)
  - OSTEONECROSIS OF JAW [None]
